FAERS Safety Report 7121506-0 (Version None)
Quarter: 2010Q4

REPORT INFORMATION
  Report Type: 
  Country: None (occurrence: None)
  Receive Date: 20101124
  Receipt Date: 20101115
  Transmission Date: 20110411
  Serious: Yes (Other)
  Sender: FDA-Public Use
  Company Number: US-ELI_LILLY_AND_COMPANY-US201011004123

PATIENT
  Sex: Female

DRUGS (4)
  1. CYMBALTA [Suspect]
     Indication: DEPRESSION
     Dosage: 60 MG, DAILY (1/D)
     Route: 064
     Dates: end: 20100923
  2. CYMBALTA [Suspect]
     Dosage: 60 MG, DAILY (1/D)
     Route: 063
  3. PRENATAL VITAMINS                  /01549301/ [Concomitant]
     Route: 064
  4. IRON [Concomitant]
     Route: 064

REACTIONS (5)
  - ABDOMINAL PAIN UPPER [None]
  - CONSTIPATION [None]
  - DRUG EXPOSURE DURING PREGNANCY [None]
  - DRUG EXPOSURE VIA BREAST MILK [None]
  - MECONIUM IN AMNIOTIC FLUID [None]
